FAERS Safety Report 15812721 (Version 3)
Quarter: 2019Q1

REPORT INFORMATION
  Report Type: Spontaneous
  Country: JP (occurrence: JP)
  Receive Date: 20190111
  Receipt Date: 20190206
  Transmission Date: 20190417
  Serious: Yes (Other)
  Sender: FDA-Public Use
  Company Number: JP-SA-2019SA006026

PATIENT
  Age: 4 Decade
  Sex: Male

DRUGS (5)
  1. FLUMETHOLON [Suspect]
     Active Substance: FLUOROMETHOLONE
     Indication: CONJUNCTIVITIS ALLERGIC
     Dosage: UNK
     Route: 065
     Dates: start: 201810
  2. ANTEBATE [Concomitant]
     Active Substance: BETAMETHASONE DIPROPIONATE
     Indication: DERMATITIS ATOPIC
     Dosage: UNK UNK, QD
     Route: 061
     Dates: start: 20171107
  3. HEPARINOID [Concomitant]
     Active Substance: CHONDROITIN SULFATE (BOVINE)
     Indication: DERMATITIS ATOPIC
     Dosage: UNK UNK, QD
     Route: 061
     Dates: start: 20171107
  4. DUPIXENT [Suspect]
     Active Substance: DUPILUMAB
     Dosage: 300 MG, QM
     Route: 058
  5. DUPIXENT [Suspect]
     Active Substance: DUPILUMAB
     Indication: DERMATITIS ATOPIC
     Dosage: 300 MG, QOW
     Route: 058
     Dates: start: 20180514, end: 20181211

REACTIONS (4)
  - Cataract [Not Recovered/Not Resolved]
  - Eye pruritus [Recovering/Resolving]
  - Conjunctivitis allergic [Recovering/Resolving]
  - Eye discharge [Recovered/Resolved]

NARRATIVE: CASE EVENT DATE: 20180611
